FAERS Safety Report 7237641-2 (Version None)
Quarter: 2011Q1

REPORT INFORMATION
  Report Type: 
  Country: None (occurrence: None)
  Receive Date: 20110121
  Receipt Date: 20110116
  Transmission Date: 20110831
  Serious: Yes (Hospitalization, Other)
  Sender: FDA-Public Use
  Company Number: PHHY2010CA78742

PATIENT
  Sex: Male

DRUGS (1)
  1. EXELON [Suspect]
     Indication: DEMENTIA ALZHEIMER'S TYPE
     Dosage: 9.5 MG, UNK
     Route: 062
     Dates: start: 20101114

REACTIONS (3)
  - BLOOD PRESSURE INCREASED [None]
  - CLUSTER HEADACHE [None]
  - TRIGEMINAL NEURALGIA [None]
